FAERS Safety Report 8005358-2 (Version None)
Quarter: 2011Q4

REPORT INFORMATION
  Report Type: 
  Country: None (occurrence: None)
  Receive Date: 20111223
  Receipt Date: 20111222
  Transmission Date: 20120403
  Serious: Yes (Disabling)
  Sender: FDA-Public Use
  Company Number: DE-PFIZER INC-2011311049

PATIENT
  Age: 86 Year
  Sex: Male

DRUGS (5)
  1. METOPROLOL [Concomitant]
     Indication: CORONARY ARTERY DISEASE
     Dosage: 50 UNK, UNK
     Route: 048
     Dates: start: 19900101
  2. ACETYLSALICYLIC ACID [Concomitant]
     Indication: CORONARY ARTERY DISEASE
     Dosage: 100 UNK, UNK
     Route: 048
     Dates: start: 19900101
  3. DOXAZOSIN MESILATE [Suspect]
     Indication: HYPERTENSION
     Dosage: 1 MG, 1X/DAY
     Route: 048
     Dates: start: 20101001
  4. METOPROLOL [Concomitant]
     Indication: HYPERTENSION
  5. ATORVASTATIN CALCIUM [Concomitant]
     Dosage: 20 UNK, UNK

REACTIONS (4)
  - JAUNDICE [None]
  - LIVER FUNCTION TEST ABNORMAL [None]
  - CHOLESTASIS [None]
  - SWELLING FACE [None]
